FAERS Safety Report 13188172 (Version 3)
Quarter: 2017Q1

REPORT INFORMATION
  Report Type: Spontaneous
  Country: JP (occurrence: JP)
  Receive Date: 20170206
  Receipt Date: 20170215
  Transmission Date: 20170428
  Serious: Yes (Hospitalization, Other)
  Sender: FDA-Public Use
  Company Number: PHJP2017JP001790

PATIENT
  Age: 82 Year
  Sex: Male

DRUGS (3)
  1. TRAZENTA [Suspect]
     Active Substance: LINAGLIPTIN
     Indication: PRODUCT USED FOR UNKNOWN INDICATION
     Dosage: UNK
     Route: 048
  2. STALEVO [Suspect]
     Active Substance: CARBIDOPA\ENTACAPONE\LEVODOPA
     Indication: PRODUCT USED FOR UNKNOWN INDICATION
     Dosage: 2 DF, UNK
     Route: 048
  3. STALEVO [Suspect]
     Active Substance: CARBIDOPA\ENTACAPONE\LEVODOPA
     Dosage: 0.5 DF, UNK
     Route: 048

REACTIONS (13)
  - Delirium [Unknown]
  - Diarrhoea [Recovering/Resolving]
  - Acute kidney injury [Unknown]
  - Pulmonary oedema [Unknown]
  - Colitis microscopic [Recovering/Resolving]
  - Chronic kidney disease [Unknown]
  - Cardiac failure congestive [Recovering/Resolving]
  - Cardiac failure [Recovered/Resolved]
  - Anaemia [Unknown]
  - Pyrexia [Recovering/Resolving]
  - Nephrogenic anaemia [Unknown]
  - Pneumonia [Unknown]
  - Infection [Unknown]

NARRATIVE: CASE EVENT DATE: 201612
